FAERS Safety Report 12867051 (Version 1)
Quarter: 2016Q4

REPORT INFORMATION
  Report Type: Spontaneous
  Country: US (occurrence: US)
  Receive Date: 20161020
  Receipt Date: 20161020
  Transmission Date: 20170207
  Serious: No
  Sender: FDA-Public Use
  Company Number: US-JAZZ-2016-US-014533

PATIENT
  Sex: Female

DRUGS (23)
  1. ZOLMITRIPTAN. [Concomitant]
     Active Substance: ZOLMITRIPTAN
  2. BENTYL [Concomitant]
     Active Substance: DICYCLOMINE HYDROCHLORIDE
  3. CALCIUM MAGNESIUM ZINC [Concomitant]
     Active Substance: CALCIUM\MAGNESIUM\ZINC
  4. CLARITIN [Concomitant]
     Active Substance: LORATADINE
  5. XYREM [Suspect]
     Active Substance: SODIUM OXYBATE
     Dosage: 3.75 G, BID
     Route: 048
     Dates: start: 201607
  6. MODAFINIL. [Concomitant]
     Active Substance: MODAFINIL
  7. ESTRACE [Concomitant]
     Active Substance: ESTRADIOL
  8. MELATONIN [Concomitant]
     Active Substance: MELATONIN
  9. PROBIOTIC [Concomitant]
     Active Substance: PROBIOTICS NOS
  10. XYREM [Suspect]
     Active Substance: SODIUM OXYBATE
     Indication: NARCOLEPSY
     Dosage: 2.25 G, BID
     Route: 048
     Dates: start: 201607, end: 201607
  11. XYREM [Suspect]
     Active Substance: SODIUM OXYBATE
     Indication: CATAPLEXY
     Dosage: 3 G, BID
     Route: 048
     Dates: start: 201607, end: 201607
  12. PROPRANOLOL [Concomitant]
     Active Substance: PROPRANOLOL\PROPRANOLOL HYDROCHLORIDE
  13. SYNTHROID [Concomitant]
     Active Substance: LEVOTHYROXINE SODIUM
  14. VITAMIN D3 [Concomitant]
     Active Substance: CHOLECALCIFEROL
  15. NASONEX [Concomitant]
     Active Substance: MOMETASONE FUROATE
  16. PROMETHAZINE [Concomitant]
     Active Substance: PROMETHAZINE\PROMETHAZINE HYDROCHLORIDE
  17. GABAPENTIN. [Concomitant]
     Active Substance: GABAPENTIN
  18. VITAMIN B COMPLEX [Concomitant]
     Active Substance: CYANOCOBALAMIN\DEXPANTHENOL\NIACINAMIDE\PYRIDOXINE HYDROCHLORIDE\RIBOFLAVIN 5^-PHOSPHATE SODIUM\THIAMINE HYDROCHLORIDE\VITAMIN B COMPLEX
  19. MULTIVITAMIN WITH MINERALS [Concomitant]
     Active Substance: MINERALS\VITAMINS
  20. DICLOFENAC [Concomitant]
     Active Substance: DICLOFENAC
  21. SKELAXIN [Concomitant]
     Active Substance: METAXALONE
  22. ZOCOR [Concomitant]
     Active Substance: SIMVASTATIN
  23. TURMERIC [Concomitant]
     Active Substance: TURMERIC

REACTIONS (1)
  - Initial insomnia [Not Recovered/Not Resolved]

NARRATIVE: CASE EVENT DATE: 2016
